FAERS Safety Report 7343359-8 (Version None)
Quarter: 2011Q1

REPORT INFORMATION
  Report Type: 
  Country: None (occurrence: None)
  Receive Date: 20110308
  Receipt Date: 20110308
  Transmission Date: 20110831
  Serious: No
  Sender: FDA-Public Use
  Company Number: None

PATIENT

DRUGS (1)
  1. ACD-A SOLUTION [Suspect]
     Indication: RENAL DISORDER
     Dosage: 1000ML IV
     Route: 042

REACTIONS (1)
  - PRODUCT OUTER PACKAGING ISSUE [None]
